FAERS Safety Report 6415802-X (Version None)
Quarter: 2009Q4

REPORT INFORMATION
  Report Type: 
  Country: None (occurrence: None)
  Receive Date: 20091027
  Receipt Date: 20091015
  Transmission Date: 20100525
  Serious: Yes (Hospitalization)
  Sender: FDA-Public Use
  Company Number: JP-PFIZER INC-2009283640

PATIENT
  Age: 61 Year

DRUGS (11)
  1. CELECOX [Suspect]
     Indication: RHEUMATOID ARTHRITIS
     Dosage: 100 MG, 2X/DAY
     Route: 048
     Dates: start: 20080712
  2. PREDONINE [Suspect]
     Indication: RHEUMATOID ARTHRITIS
     Dosage: 5 MG, 2X/DAY
     Route: 048
  3. METHOTREXATE [Suspect]
     Indication: RHEUMATOID ARTHRITIS
     Dosage: 13 MG, WEEKLY
     Route: 048
     Dates: start: 20060920
  4. RIMATIL [Concomitant]
     Dosage: UNK
  5. INDOMETACIN [Concomitant]
  6. D ALFA [Concomitant]
     Dosage: UNK
  7. MARZULENE S [Concomitant]
     Dosage: UNK
  8. GASTER [Concomitant]
  9. LIPITOR [Concomitant]
     Dosage: UNK
  10. FOLIAMIN [Concomitant]
  11. RISEDRONATE SODIUM [Concomitant]
     Dosage: UNK
     Dates: start: 20080517

REACTIONS (2)
  - CELLULITIS [None]
  - NECROTISING FASCIITIS [None]
